FAERS Safety Report 8332714-5 (Version None)
Quarter: 2012Q2

REPORT INFORMATION
  Report Type: 
  Country: None (occurrence: None)
  Receive Date: 20120503
  Receipt Date: 20120426
  Transmission Date: 20120825
  Serious: Yes (Hospitalization)
  Sender: FDA-Public Use
  Company Number: US-CELGENEUS-163-21880-12022094

PATIENT
  Sex: Male
  Weight: 96.248 kg

DRUGS (11)
  1. CYTOXAN [Concomitant]
     Route: 065
  2. REVLIMID [Suspect]
     Indication: MULTIPLE MYELOMA
     Dosage: 25 MILLIGRAM
     Route: 048
     Dates: start: 20090101, end: 20111128
  3. HYDROCODONE [Concomitant]
     Route: 065
  4. LASIX [Concomitant]
     Dosage: 40 MILLIGRAM
     Route: 065
  5. VIAGRA [Concomitant]
     Route: 065
  6. VELCADE [Concomitant]
     Route: 065
  7. ZOMETA [Concomitant]
     Route: 065
  8. REVLIMID [Suspect]
     Dosage: 15 MILLIGRAM
     Route: 048
     Dates: start: 20120201
  9. ACYCLOVIR [Concomitant]
     Route: 065
  10. FENTANYL [Concomitant]
     Route: 065
  11. DECADRON [Concomitant]
     Route: 065

REACTIONS (1)
  - BLOOD CALCIUM INCREASED [None]
